FAERS Safety Report 11457372 (Version 1)
Quarter: 2015Q3

REPORT INFORMATION
  Report Type: Spontaneous
  Country: FR (occurrence: FR)
  Receive Date: 20150904
  Receipt Date: 20150904
  Transmission Date: 20151125
  Serious: Yes (Hospitalization)
  Sender: FDA-Public Use
  Company Number: FR-ORION CORPORATION ORION PHARMA-TREX2015-0545

PATIENT
  Age: 82 Year
  Sex: Female

DRUGS (13)
  1. METHOTREXATE (METHOTREXATE SODIUM) [Suspect]
     Active Substance: METHOTREXATE SODIUM
     Indication: RHEUMATOID ARTHRITIS
     Dosage: STRENGTH: 2.5 MG
     Route: 048
     Dates: start: 20150329, end: 20150330
  2. LASILIX [Concomitant]
     Active Substance: FUROSEMIDE
     Dosage: STRENGTH: 40 MG
     Route: 065
  3. METRONIDAZOLE B BRAUN [Concomitant]
     Active Substance: METRONIDAZOLE
     Dosage: STRENGTH: 0.5%
     Route: 042
     Dates: start: 20150326, end: 20150402
  4. AMIKACINE [Concomitant]
     Active Substance: AMIKACIN
     Dosage: STRENGTH: 1 G
     Route: 042
     Dates: start: 20150329, end: 20150331
  5. KALEORID LP [Concomitant]
     Route: 065
  6. CEFTRIAXONE. [Concomitant]
     Active Substance: CEFTRIAXONE
     Dosage: STRENGTH: 1G
     Route: 065
     Dates: start: 20150326, end: 20150329
  7. IMIPENEM AND CILASTATIN [Concomitant]
     Active Substance: CILASTATIN SODIUM\IMIPENEM
     Route: 042
  8. PARACETAMOL [Concomitant]
     Active Substance: ACETAMINOPHEN
     Route: 065
  9. FOLINATE DE CALCIUM ZENTIVA [Concomitant]
     Active Substance: LEUCOVORIN CALCIUM
     Route: 042
     Dates: start: 20150401, end: 20150407
  10. PREVISCAN [Concomitant]
     Active Substance: FLUINDIONE
     Dosage: STRENGTH: 20 MG
     Route: 048
     Dates: end: 20150330
  11. INEXIUM [Concomitant]
     Active Substance: ESOMEPRAZOLE
     Route: 065
  12. TERBUTALINE SULFATE. [Concomitant]
     Active Substance: TERBUTALINE SULFATE
     Route: 065
  13. SPASFON [Concomitant]
     Active Substance: PHLOROGLUCINOL
     Route: 065

REACTIONS (5)
  - Drug dispensing error [Unknown]
  - Aplastic anaemia [Unknown]
  - Neutropenia [Recovered/Resolved]
  - International normalised ratio increased [Recovered/Resolved]
  - Thrombocytopenia [Recovered/Resolved]

NARRATIVE: CASE EVENT DATE: 20150329
